FAERS Safety Report 6274553-5 (Version None)
Quarter: 2009Q3

REPORT INFORMATION
  Report Type: 
  Country: None (occurrence: None)
  Receive Date: 20090720
  Receipt Date: 20090617
  Transmission Date: 20100115
  Serious: Yes (Death)
  Sender: FDA-Public Use
  Company Number: NZ-AVENTIS-200916424GDDC

PATIENT
  Age: 83 Year
  Sex: Female

DRUGS (5)
  1. LEFLUNOMIDE [Suspect]
     Dates: start: 20030501, end: 20040216
  2. METHOTREXATE [Suspect]
     Dates: start: 20030806, end: 20040212
  3. FRUSEMIDE [Concomitant]
  4. OMEPRAZOLE [Concomitant]
  5. PREDNISONE TAB [Concomitant]

REACTIONS (5)
  - DEATH [None]
  - DYSPNOEA [None]
  - PNEUMONITIS [None]
  - RESPIRATORY FAILURE [None]
  - WEIGHT DECREASED [None]
